FAERS Safety Report 13948134 (Version 3)
Quarter: 2018Q1

REPORT INFORMATION
  Report Type: Spontaneous
  Country: US (occurrence: US)
  Receive Date: 20170908
  Receipt Date: 20180110
  Transmission Date: 20180508
  Serious: No
  Sender: FDA-Public Use
  Company Number: US-PFIZER INC-2017162161

PATIENT
  Age: 55 Year
  Sex: Male
  Weight: 108.84 kg

DRUGS (1)
  1. XELJANZ XR [Suspect]
     Active Substance: TOFACITINIB CITRATE
     Indication: RHEUMATOID ARTHRITIS
     Dosage: 11 MG, 1X/DAY
     Route: 048
     Dates: start: 201704

REACTIONS (14)
  - Rash erythematous [Unknown]
  - Abdominal distension [Not Recovered/Not Resolved]
  - Productive cough [Not Recovered/Not Resolved]
  - Cheilitis [Not Recovered/Not Resolved]
  - Decreased appetite [Not Recovered/Not Resolved]
  - Sinusitis [Not Recovered/Not Resolved]
  - Pruritus [Unknown]
  - Rash macular [Not Recovered/Not Resolved]
  - Skin disorder [Unknown]
  - Oral herpes [Unknown]
  - Nasal congestion [Not Recovered/Not Resolved]
  - Dysphagia [Not Recovered/Not Resolved]
  - Nasal discomfort [Not Recovered/Not Resolved]
  - Increased upper airway secretion [Unknown]
